FAERS Safety Report 8341740-1 (Version None)
Quarter: 2012Q2

REPORT INFORMATION
  Report Type: 
  Country: None (occurrence: None)
  Receive Date: 20120507
  Receipt Date: 20120501
  Transmission Date: 20120825
  Serious: Yes (Other)
  Sender: FDA-Public Use
  Company Number: US-PFIZER INC-2012094142

PATIENT
  Sex: Female
  Weight: 65.76 kg

DRUGS (6)
  1. CHANTIX [Suspect]
     Indication: SMOKING CESSATION THERAPY
     Dosage: 0.5 MG, 1X/DAY
     Route: 048
     Dates: start: 20111201
  2. XANAX [Concomitant]
     Indication: BIPOLAR DISORDER
     Dosage: UNK
  3. CHANTIX [Suspect]
     Dosage: 1 MG, 2X/DAY
     Route: 048
     Dates: end: 20120301
  4. LITHIUM [Concomitant]
     Indication: BIPOLAR DISORDER
     Dosage: UNK
  5. SEROQUEL [Concomitant]
     Indication: BIPOLAR DISORDER
     Dosage: UNK
  6. REMERON [Concomitant]
     Indication: BIPOLAR DISORDER
     Dosage: UNK

REACTIONS (1)
  - VOCAL CORD POLYP [None]
